FAERS Safety Report 14565211 (Version 2)
Quarter: 2018Q1

REPORT INFORMATION
  Report Type: Spontaneous
  Country: JP (occurrence: JP)
  Receive Date: 20180223
  Receipt Date: 20180308
  Transmission Date: 20180509
  Serious: Yes (Death, Life-Threatening)
  Sender: FDA-Public Use
  Company Number: JP-ROCHE-2079021

PATIENT
  Age: 57 Year
  Sex: Female
  Weight: 48 kg

DRUGS (17)
  1. PREDONINE [Suspect]
     Active Substance: PREDNISOLONE
     Route: 048
     Dates: start: 20171221, end: 20180103
  2. ACTEMRA [Suspect]
     Active Substance: TOCILIZUMAB
     Indication: STILL^S DISEASE
     Route: 058
     Dates: start: 20171213, end: 20180213
  3. PREDONINE [Suspect]
     Active Substance: PREDNISOLONE
     Route: 048
     Dates: start: 20171214, end: 20171220
  4. PARIET [Suspect]
     Active Substance: RABEPRAZOLE SODIUM
     Indication: PRODUCT USED FOR UNKNOWN INDICATION
     Route: 048
     Dates: start: 20171130, end: 20180213
  5. METHYLPREDNISOLONE. [Concomitant]
     Active Substance: METHYLPREDNISOLONE
     Route: 065
     Dates: start: 20171130, end: 20171202
  6. PREDONINE [Suspect]
     Active Substance: PREDNISOLONE
     Dosage: 3 IN MORNING AND 2 IN EVENING
     Route: 048
     Dates: start: 20180130, end: 20180213
  7. FOLIAMIN [Suspect]
     Active Substance: FOLIC ACID
     Indication: PRODUCT USED FOR UNKNOWN INDICATION
     Route: 048
     Dates: start: 20171209, end: 20180213
  8. PREDONINE [Suspect]
     Active Substance: PREDNISOLONE
     Route: 048
     Dates: start: 20171203, end: 20171210
  9. BAKTAR [Suspect]
     Active Substance: SULFAMETHOXAZOLE\TRIMETHOPRIM
     Indication: PRODUCT USED FOR UNKNOWN INDICATION
     Dosage: AMOUNT OF 1 ONCE ADMINISTRATION: 0.5 (UNIT UNCERTAINTY)
     Route: 048
     Dates: start: 20171130, end: 20180213
  10. METHOTREXATE. [Suspect]
     Active Substance: METHOTREXATE
     Route: 048
     Dates: start: 20171208, end: 20171215
  11. METHOTREXATE. [Suspect]
     Active Substance: METHOTREXATE
     Route: 048
     Dates: start: 20171216, end: 20180213
  12. METHOTREXATE. [Suspect]
     Active Substance: METHOTREXATE
     Indication: PRODUCT USED FOR UNKNOWN INDICATION
     Route: 048
     Dates: start: 20171201, end: 20171207
  13. METHYLPREDNISOLONE. [Concomitant]
     Active Substance: METHYLPREDNISOLONE
     Dosage: DOSE INTERVAL UNCERTAINTY
     Route: 065
     Dates: start: 20171211, end: 20171213
  14. PREDONINE [Suspect]
     Active Substance: PREDNISOLONE
     Route: 048
     Dates: start: 20180104, end: 20180129
  15. TENELIA [Suspect]
     Active Substance: TENELIGLIPTIN
     Indication: DIABETES MELLITUS
     Route: 048
     Dates: start: 20171225, end: 20180213
  16. EDIROL [Suspect]
     Active Substance: ELDECALCITOL
     Indication: PRODUCT USED FOR UNKNOWN INDICATION
     Route: 048
     Dates: start: 20171228, end: 20180213
  17. PREDONINE [Suspect]
     Active Substance: PREDNISOLONE
     Indication: PRODUCT USED FOR UNKNOWN INDICATION
     Route: 048

REACTIONS (3)
  - Cerebral haemorrhage [Fatal]
  - Off label use [Unknown]
  - Diabetes mellitus [Recovered/Resolved]

NARRATIVE: CASE EVENT DATE: 20171225
